FAERS Safety Report 17539853 (Version 3)
Quarter: 2020Q4

REPORT INFORMATION
  Report Type: Spontaneous
  Country: US (occurrence: US)
  Receive Date: 20200313
  Receipt Date: 20201013
  Transmission Date: 20210113
  Serious: Yes (Other)
  Sender: FDA-Public Use
  Company Number: US-ASTRAZENECA-2020SE34943

PATIENT
  Age: 11648 Day
  Sex: Female
  Weight: 95.3 kg

DRUGS (46)
  1. NEXIUM [Suspect]
     Active Substance: ESOMEPRAZOLE MAGNESIUM
     Indication: GASTROOESOPHAGEAL REFLUX DISEASE
     Route: 048
     Dates: start: 201008, end: 201010
  2. PREVACID [Suspect]
     Active Substance: LANSOPRAZOLE
     Indication: GASTROOESOPHAGEAL REFLUX DISEASE
     Route: 065
     Dates: start: 2006, end: 2017
  3. PREVACID [Suspect]
     Active Substance: LANSOPRAZOLE
     Indication: GASTROOESOPHAGEAL REFLUX DISEASE
     Dosage: GENERIC
     Route: 065
  4. OXYBUTYNIN. [Concomitant]
     Active Substance: OXYBUTYNIN CHLORIDE
     Dates: start: 20160202
  5. SULINDAC. [Concomitant]
     Active Substance: SULINDAC
     Dates: start: 20080124
  6. BROMOCRIPTINE [Concomitant]
     Active Substance: BROMOCRIPTINE
  7. NEXIUM [Suspect]
     Active Substance: ESOMEPRAZOLE MAGNESIUM
     Indication: GASTROOESOPHAGEAL REFLUX DISEASE
     Route: 048
     Dates: start: 20101015
  8. OMEPRAZOLE. [Suspect]
     Active Substance: OMEPRAZOLE
     Indication: GASTROOESOPHAGEAL REFLUX DISEASE
     Dosage: GENERIC
     Route: 065
     Dates: start: 201604, end: 201809
  9. PREVACID [Suspect]
     Active Substance: LANSOPRAZOLE
     Indication: GASTROOESOPHAGEAL REFLUX DISEASE
     Route: 065
     Dates: start: 20080425
  10. TOPIRAMATE. [Concomitant]
     Active Substance: TOPIRAMATE
  11. VERAPAMIL [Concomitant]
     Active Substance: VERAPAMIL HYDROCHLORIDE
  12. HYDROCODONE [Concomitant]
     Active Substance: HYDROCODONE
     Dates: start: 20101202
  13. AMOXICILLIN. [Concomitant]
     Active Substance: AMOXICILLIN
     Dates: start: 20101012
  14. METOCLOPRAMIDE. [Concomitant]
     Active Substance: METOCLOPRAMIDE
     Dates: start: 20100907
  15. LEVAQUIN [Concomitant]
     Active Substance: LEVOFLOXACIN
     Dates: start: 20080327
  16. KETOROLAC [Concomitant]
     Active Substance: KETOROLAC TROMETHAMINE
     Dates: start: 20191017
  17. RANITIDINE. [Concomitant]
     Active Substance: RANITIDINE
  18. VITAMIN D12 [Concomitant]
  19. MONTELUKAST [Concomitant]
     Active Substance: MONTELUKAST SODIUM
  20. SPIRANOLACTONE [Concomitant]
     Active Substance: SPIRONOLACTONE
  21. OMEPRAZOLE. [Suspect]
     Active Substance: OMEPRAZOLE
     Indication: GASTROOESOPHAGEAL REFLUX DISEASE
     Dosage: GENERC CAPSULE
     Route: 065
     Dates: start: 20160921
  22. CLONAZEPAM. [Concomitant]
     Active Substance: CLONAZEPAM
     Dates: start: 20101202
  23. METFORMIN [Concomitant]
     Active Substance: METFORMIN HYDROCHLORIDE
     Dates: start: 20101015
  24. DOXYCYCLINE. [Concomitant]
     Active Substance: DOXYCYCLINE
     Dates: start: 20060519
  25. ACTOS [Concomitant]
     Active Substance: PIOGLITAZONE HYDROCHLORIDE
     Dates: start: 20191017
  26. CARVEDILOL. [Concomitant]
     Active Substance: CARVEDILOL
     Dates: start: 20191017
  27. BUPROPION. [Concomitant]
     Active Substance: BUPROPION
  28. PERCOCET [Concomitant]
     Active Substance: ACETAMINOPHEN\OXYCODONE HYDROCHLORIDE
  29. CYANOCOBALAMINE [Concomitant]
     Active Substance: CYANOCOBALAMIN
  30. ALPRAZOLAM. [Concomitant]
     Active Substance: ALPRAZOLAM
     Dates: start: 20160202
  31. TRAMADOL. [Concomitant]
     Active Substance: TRAMADOL
     Dates: start: 20101127
  32. SULFAMETHOXAZOLE [Concomitant]
     Active Substance: SULFAMETHOXAZOLE
     Dates: start: 20101004
  33. BACLOFEN. [Concomitant]
     Active Substance: BACLOFEN
     Dates: start: 20080430
  34. ALBUTEROL. [Concomitant]
     Active Substance: ALBUTEROL
     Dates: start: 20060710
  35. TRADJENTA [Concomitant]
     Active Substance: LINAGLIPTIN
  36. JANUMET [Concomitant]
     Active Substance: METFORMIN HYDROCHLORIDE\SITAGLIPTIN PHOSPHATE
  37. NEXIUM [Suspect]
     Active Substance: ESOMEPRAZOLE MAGNESIUM
     Indication: GASTROOESOPHAGEAL REFLUX DISEASE
     Route: 048
     Dates: start: 2006, end: 2017
  38. OXYCODONE [Concomitant]
     Active Substance: OXYCODONE
     Dates: start: 20160202
  39. FLUCONAZOLE. [Concomitant]
     Active Substance: FLUCONAZOLE
     Dates: start: 20101202
  40. GABAPENTIN. [Concomitant]
     Active Substance: GABAPENTIN
     Dates: start: 20100902
  41. PIROXICAM. [Concomitant]
     Active Substance: PIROXICAM
     Dates: start: 20060629
  42. LASIX [Concomitant]
     Active Substance: FUROSEMIDE
  43. APIDRA SOLOSTAR [Concomitant]
     Active Substance: INSULIN GLULISINE
     Dates: start: 20120217
  44. LORAZEPAM. [Concomitant]
     Active Substance: LORAZEPAM
     Dates: start: 20080430
  45. HUMALOG [Concomitant]
     Active Substance: INSULIN LISPRO
     Dates: start: 20060710
  46. CEPHALEXIN. [Concomitant]
     Active Substance: CEPHALEXIN
     Dates: start: 20061030

REACTIONS (2)
  - Chronic kidney disease [Not Recovered/Not Resolved]
  - Acute kidney injury [Unknown]

NARRATIVE: CASE EVENT DATE: 20170314
